FAERS Safety Report 10249172 (Version 2)
Quarter: 2014Q3

REPORT INFORMATION
  Report Type: Spontaneous
  Country: US (occurrence: US)
  Receive Date: 20140620
  Receipt Date: 20140708
  Transmission Date: 20150326
  Serious: No
  Sender: FDA-Public Use
  Company Number: US-ASTRAZENECA-2014SE40651

PATIENT
  Age: 84 Year
  Sex: Male

DRUGS (1)
  1. PULMICORT FLEXHALER [Suspect]
     Active Substance: BUDESONIDE
     Route: 055
     Dates: start: 20140609

REACTIONS (5)
  - Circumstance or information capable of leading to medication error [Unknown]
  - Intentional product misuse [Unknown]
  - Dyspnoea [Unknown]
  - Wheezing [Unknown]
  - Asthenia [Unknown]

NARRATIVE: CASE EVENT DATE: 20140610
